FAERS Safety Report 4353470-1 (Version None)
Quarter: 2004Q2

REPORT INFORMATION
  Report Type: 
  Country: None (occurrence: None)
  Receive Date: 20040430
  Receipt Date: 20040415
  Transmission Date: 20050107
  Serious: Yes (Life-Threatening, Hospitalization)
  Sender: FDA-Public Use
  Company Number: CIP03003484

PATIENT
  Age: 70 Year
  Sex: Male

DRUGS (15)
  1. DIDRONEL [Suspect]
     Indication: OSTEOPOROSIS
     Dosage: 200 MG, CYCLIC 1/D, ORAL
     Route: 048
     Dates: start: 20030729, end: 20030817
  2. DIDRONEL [Suspect]
     Indication: OSTEOPOROSIS
     Dosage: 200 MG, CYCLIC 1/D, ORAL
     Route: 048
     Dates: start: 20031104, end: 20031117
  3. DIDRONEL [Suspect]
     Indication: OSTEOPOROSIS
     Dosage: 200 MG, CYCLIC 1/D, ORAL
     Route: 048
     Dates: start: 19990301
  4. BECOTIDE (BECLOMETASONE DIPROPIONATE) [Concomitant]
  5. CLINORIL [Concomitant]
  6. FAMOTIDINE [Concomitant]
  7. HOKUNALIN (TULOBUTEROL HYDROCHLORIDE) [Concomitant]
  8. INTEBAN (INDOMETACIN) CREAM [Concomitant]
  9. THEO-DUR [Concomitant]
  10. PROCATEROL HCL [Concomitant]
  11. MUCODYNE (CARBOCISTEINE) [Concomitant]
  12. URALYT (SOLIDAGO VIRGAUREA, RUBIA TINCTORUM, MAGNESIUM PHOSPHATE, EQUI [Concomitant]
  13. SYNACLYN (FLUNISOLIDE) [Concomitant]
  14. URINORM (BENZBROMARONE) [Concomitant]
  15. ONE-ALPHA (ALFACALCIDOL) [Concomitant]

REACTIONS (8)
  - ALLERGIC GRANULOMATOUS ANGIITIS [None]
  - ANOREXIA [None]
  - ARTHRALGIA [None]
  - EOSINOPHILIC PNEUMONIA [None]
  - EPISTAXIS [None]
  - IDIOPATHIC THROMBOCYTOPENIC PURPURA [None]
  - PNEUMOCYSTIS CARINII PNEUMONIA [None]
  - PYREXIA [None]
